FAERS Safety Report 8123798-8 (Version None)
Quarter: 2012Q1

REPORT INFORMATION
  Report Type: 
  Country: None (occurrence: None)
  Receive Date: 20120208
  Receipt Date: 20120127
  Transmission Date: 20120608
  Serious: Yes (Disabling)
  Sender: FDA-Public Use
  Company Number: JP-BRISTOL-MYERS SQUIBB COMPANY-16334054

PATIENT
  Age: 51 Year
  Sex: Male

DRUGS (4)
  1. MITOMYCIN [Suspect]
     Indication: MALIGNANT FIBROUS HISTIOCYTOMA
     Dosage: INJ 11-11JAN2002,20MG,900MG+150MG 28-28FEB2002,17MG,510MG+25.5MG 29-29MAR2002,10MG+150MG
     Route: 013
     Dates: start: 20020111
  2. METHYCOBAL [Concomitant]
     Route: 048
     Dates: start: 20020329
  3. EPIRUBICIN HYDROCHLORIDE [Suspect]
     Indication: MALIGNANT FIBROUS HISTIOCYTOMA
     Dosage: INTERRUPTED ON 29MAR2002
     Route: 013
     Dates: start: 20020329
  4. LOXONIN [Concomitant]
     Route: 048

REACTIONS (2)
  - FEMORAL NERVE PALSY [None]
  - SKIN NECROSIS [None]
